FAERS Safety Report 8243777-X (Version None)
Quarter: 2012Q1

REPORT INFORMATION
  Report Type: 
  Country: None (occurrence: None)
  Receive Date: 20120329
  Receipt Date: 20111005
  Transmission Date: 20120608
  Serious: No
  Sender: FDA-Public Use
  Company Number: US-MYLANLABS-2011S1020733

PATIENT
  Age: 38 Year
  Sex: Female
  Weight: 48.99 kg

DRUGS (2)
  1. EMSAM [Suspect]
     Indication: DEPRESSION
     Dosage: CHANGES Q.D.
     Route: 062
     Dates: start: 20110928
  2. LAMICTAL [Concomitant]
     Indication: DEPRESSION
     Dates: start: 20090101

REACTIONS (2)
  - ENURESIS [None]
  - CRYING [None]
